FAERS Safety Report 4845537-6 (Version None)
Quarter: 2005Q4

REPORT INFORMATION
  Report Type: 
  Country: None (occurrence: None)
  Receive Date: 20051201
  Receipt Date: 20051129
  Transmission Date: 20060501
  Serious: Yes (Death)
  Sender: FDA-Public Use
  Company Number: US-2005-011000

PATIENT
  Age: 43 Year
  Sex: Female

DRUGS (1)
  1. BETASERON (INTERFERON ETA- 1B) INJECTION, 250?G [Suspect]
     Indication: MULTIPLE SCLEROSIS
     Dosage: SUBCUTANEOUS
     Route: 058
     Dates: start: 20040303, end: 20050411

REACTIONS (1)
  - CARDIAC ARREST [None]
